FAERS Safety Report 5450514-0 (Version None)
Quarter: 2007Q3

REPORT INFORMATION
  Report Type: 
  Country: None (occurrence: None)
  Receive Date: 20070912
  Receipt Date: 20070831
  Transmission Date: 20080115
  Serious: No
  Sender: FDA-Public Use
  Company Number: US-BOEHRINGER INGELHEIM PHARMACEUTICALS, INC.-2007-BP-20185BP

PATIENT
  Sex: Female

DRUGS (1)
  1. FLOMAX [Suspect]
     Indication: URINARY TRACT INFECTION
     Route: 048
     Dates: start: 20050101

REACTIONS (1)
  - MENORRHAGIA [None]
